APPROVED DRUG PRODUCT: GEMFIBROZIL
Active Ingredient: GEMFIBROZIL
Strength: 300MG
Dosage Form/Route: CAPSULE;ORAL
Application: A072929 | Product #001
Applicant: PUREPAC PHARMACEUTICAL CO
Approved: Jan 29, 1993 | RLD: No | RS: No | Type: DISCN